FAERS Safety Report 6121679-2 (Version None)
Quarter: 2009Q1

REPORT INFORMATION
  Report Type: 
  Country: None (occurrence: None)
  Receive Date: 20090313
  Receipt Date: 20090226
  Transmission Date: 20090719
  Serious: Yes (Other)
  Sender: FDA-Public Use
  Company Number: 8043629

PATIENT
  Sex: Female
  Weight: 64 kg

DRUGS (8)
  1. KEPPRA [Suspect]
     Indication: EPILEPSY
     Dosage: 500 MG 2/D PO
     Dates: start: 20040101
  2. KLONOPIN [Concomitant]
  3. SYNTHROID [Concomitant]
  4. LOPERAMIDE HCL [Concomitant]
  5. LOMOTIL [Concomitant]
  6. PEPTO-BISMOL [Concomitant]
  7. VITAMINS [Concomitant]
  8. MINERAL TAB [Concomitant]

REACTIONS (4)
  - MOOD ALTERED [None]
  - RENAL DISORDER [None]
  - SPINAL OSTEOARTHRITIS [None]
  - SURGICAL PROCEDURE REPEATED [None]
